FAERS Safety Report 13463787 (Version 1)
Quarter: 2017Q2

REPORT INFORMATION
  Report Type: Spontaneous
  Country: US (occurrence: US)
  Receive Date: 20170420
  Receipt Date: 20170420
  Transmission Date: 20170830
  Serious: No
  Sender: FDA-Public Use
  Company Number: US-ROCHE-688896

PATIENT
  Sex: Male
  Weight: 104.3 kg

DRUGS (1)
  1. ACCUTANE [Suspect]
     Active Substance: ISOTRETINOIN
     Indication: ACNE
     Dosage: TAKEN FOR 1-2 YEARS
     Route: 048

REACTIONS (3)
  - Insomnia [Unknown]
  - Hypersensitivity [Unknown]
  - Dry skin [Unknown]
